FAERS Safety Report 19861476 (Version 1)
Quarter: 2021Q3

REPORT INFORMATION
  Report Type: Report from Study
  Country: US (occurrence: US)
  Receive Date: 20210920
  Receipt Date: 20210920
  Transmission Date: 20211014
  Serious: Yes (Other)
  Sender: FDA-Public Use
  Company Number: US-PFIZER INC-202101177868

PATIENT
  Age: 68 Year
  Sex: Female

DRUGS (3)
  1. IBRANCE [Suspect]
     Active Substance: PALBOCICLIB
     Dosage: 100 MG
  2. IBRANCE [Suspect]
     Active Substance: PALBOCICLIB
     Dosage: 100 MG, CYCLIC (2 WEEKS ON AND ONE WEEK OFF)
  3. LETROZOLE. [Concomitant]
     Active Substance: LETROZOLE
     Dosage: UNK

REACTIONS (12)
  - Coordination abnormal [Unknown]
  - Neuropathy peripheral [Unknown]
  - Arthralgia [Unknown]
  - Pain in extremity [Unknown]
  - Respiratory disorder [Unknown]
  - Nodule [Unknown]
  - Inflammation [Unknown]
  - Dyspnoea exertional [Unknown]
  - Back pain [Unknown]
  - Asthma [Unknown]
  - Musculoskeletal stiffness [Unknown]
  - Irritability [Recovering/Resolving]

NARRATIVE: CASE EVENT DATE: 202108
